FAERS Safety Report 14491299 (Version 2)
Quarter: 2018Q2

REPORT INFORMATION
  Report Type: Spontaneous
  Country: DE (occurrence: DE)
  Receive Date: 20180206
  Receipt Date: 20180411
  Transmission Date: 20180711
  Serious: Yes (Hospitalization)
  Sender: FDA-Public Use
  Company Number: PHHY2017DE199920

PATIENT
  Age: 79 Year
  Sex: Male
  Weight: 81.5 kg

DRUGS (8)
  1. 5-FLUOROURACIL [Suspect]
     Active Substance: FLUOROURACIL
     Indication: RECTOSIGMOID CANCER
     Dosage: 5880 MG, CYCLIC
     Route: 042
     Dates: start: 20170725, end: 20170725
  2. 5-FLUOROURACIL [Suspect]
     Active Substance: FLUOROURACIL
     Dosage: 5880 MG, CYCLIC
     Route: 042
     Dates: start: 20170919, end: 20170919
  3. OXALIPLATIN. [Suspect]
     Active Substance: OXALIPLATIN
     Dosage: 178.5 MG, CYCLIC
     Route: 042
     Dates: start: 20170919, end: 20170919
  4. AFLIBERCEPT [Suspect]
     Active Substance: AFLIBERCEPT
     Indication: RECTOSIGMOID CANCER
     Dosage: 340 MG, CYCLIC
     Route: 042
     Dates: start: 20170725, end: 20170725
  5. LEUCOVORIN. [Suspect]
     Active Substance: LEUCOVORIN
     Dosage: 735 MG, CYCLIC
     Route: 042
     Dates: start: 20170919, end: 20170919
  6. OXALIPLATIN. [Suspect]
     Active Substance: OXALIPLATIN
     Indication: RECTOSIGMOID CANCER
     Dosage: 178.5 MG, CYCLIC
     Route: 042
     Dates: start: 20170725, end: 20170725
  7. AFLIBERCEPT [Suspect]
     Active Substance: AFLIBERCEPT
     Dosage: 340 MG, CYCLIC
     Route: 042
     Dates: start: 20170905, end: 20170905
  8. LEUCOVORIN. [Suspect]
     Active Substance: LEUCOVORIN
     Indication: RECTOSIGMOID CANCER
     Dosage: 735 MG, CYCLIC
     Route: 042
     Dates: start: 20170725, end: 20170725

REACTIONS (4)
  - General physical health deterioration [Not Recovered/Not Resolved]
  - White blood cell count decreased [Recovered/Resolved]
  - Cholecystitis acute [Not Recovered/Not Resolved]
  - Neutrophil count decreased [Recovered/Resolved]

NARRATIVE: CASE EVENT DATE: 20170919
